FAERS Safety Report 8180340-3 (Version None)
Quarter: 2012Q1

REPORT INFORMATION
  Report Type: 
  Country: None (occurrence: None)
  Receive Date: 20120302
  Receipt Date: 20120217
  Transmission Date: 20120608
  Serious: Yes (Hospitalization)
  Sender: FDA-Public Use
  Company Number: NZ-MYLANLABS-2012S1004005

PATIENT
  Age: 42 Year
  Sex: Male

DRUGS (5)
  1. CLOZAPINE [Suspect]
     Indication: SCHIZOPHRENIA
     Dosage: 300 MG/DAY
     Route: 065
  2. BENZTROPINE MESYLATE [Concomitant]
     Dosage: 2MG DAILY
     Route: 065
  3. CITALOPRAM HYDROBROMIDE [Concomitant]
     Dosage: 20MG DAILY
     Route: 065
  4. CLONAZEPAM [Concomitant]
     Dosage: 0.25MG DAILY
     Route: 065
  5. AMOXICILLIN [Concomitant]
     Indication: UPPER RESPIRATORY TRACT INFECTION
     Route: 065

REACTIONS (5)
  - EXPRESSIVE LANGUAGE DISORDER [None]
  - CONFUSIONAL STATE [None]
  - TOXICITY TO VARIOUS AGENTS [None]
  - DISORIENTATION [None]
  - ABNORMAL BEHAVIOUR [None]
